FAERS Safety Report 5383127-X (Version None)
Quarter: 2007Q3

REPORT INFORMATION
  Report Type: 
  Country: None (occurrence: None)
  Receive Date: 20070710
  Receipt Date: 20070627
  Transmission Date: 20080115
  Serious: Yes (Hospitalization)
  Sender: FDA-Public Use
  Company Number: JP-ASTRAZENECA-2007AP02628

PATIENT
  Age: 22108 Day
  Sex: Male

DRUGS (7)
  1. SEROQUEL [Suspect]
     Indication: SEDATION
     Route: 048
     Dates: start: 20070207, end: 20070220
  2. SEROQUEL [Suspect]
     Route: 048
     Dates: start: 20070221, end: 20070301
  3. SEROQUEL [Suspect]
     Route: 048
     Dates: start: 20070302, end: 20070305
  4. DEPAKENE [Concomitant]
     Indication: MANIA
     Route: 048
     Dates: start: 20070202, end: 20070206
  5. DEPAKENE [Concomitant]
     Route: 048
     Dates: start: 20070207, end: 20070219
  6. DEPAKENE [Concomitant]
     Route: 048
     Dates: start: 20070220, end: 20070313
  7. DEPAKENE [Concomitant]
     Route: 048
     Dates: start: 20070314

REACTIONS (2)
  - PLATELET COUNT DECREASED [None]
  - WHITE BLOOD CELL COUNT DECREASED [None]
